FAERS Safety Report 7715567-5 (Version None)
Quarter: 2011Q3

REPORT INFORMATION
  Report Type: 
  Country: None (occurrence: None)
  Receive Date: 20110810
  Receipt Date: 20110124
  Transmission Date: 20111222
  Serious: Yes (Other)
  Sender: FDA-Public Use
  Company Number: 2011AT000031

PATIENT
  Age: 63 Year
  Sex: Male

DRUGS (6)
  1. VITAMINS NOS [Concomitant]
  2. DIOVAN [Concomitant]
  3. HYDROCHLORTHIAZIDE [Concomitant]
  4. POTASSIUM CHLORIDE [Concomitant]
  5. EDEX [Suspect]
     Indication: ERECTILE DYSFUNCTION
     Dosage: 5-20 UG;ICAN
  6. TRIMIX [Suspect]

REACTIONS (1)
  - ERECTION INCREASED [None]
